FAERS Safety Report 14103835 (Version 1)
Quarter: 2017Q4

REPORT INFORMATION
  Report Type: Spontaneous
  Country: PL (occurrence: PL)
  Receive Date: 20171018
  Receipt Date: 20171018
  Transmission Date: 20180321
  Serious: Yes (Other)
  Sender: FDA-Public Use
  Company Number: PL-ASTRAZENECA-2017SF04678

PATIENT
  Sex: Male

DRUGS (6)
  1. KALIUM [Concomitant]
     Active Substance: POTASSIUM CHLORIDE
  2. ATORVASTEROL [Concomitant]
     Active Substance: ATORVASTATIN
  3. BRILIQUE [Suspect]
     Active Substance: TICAGRELOR
     Route: 048
  4. BETASERC [Concomitant]
     Active Substance: BETAHISTINE
  5. ACARD [Concomitant]
     Active Substance: ASPIRIN
  6. METOPROLOL TARTRATE. [Concomitant]
     Active Substance: METOPROLOL TARTRATE
     Dosage: 75

REACTIONS (1)
  - Balance disorder [Recovering/Resolving]
